FAERS Safety Report 6099808-9 (Version None)
Quarter: 2009Q1

REPORT INFORMATION
  Report Type: 
  Country: None (occurrence: None)
  Receive Date: 20090226
  Receipt Date: 20090213
  Transmission Date: 20090719
  Serious: Yes (Life-Threatening)
  Sender: FDA-Public Use
  Company Number: 2008002989

PATIENT
  Age: 75 Year
  Sex: Female
  Weight: 65 kg

DRUGS (11)
  1. ERLOTINIB (ERLOTINIB) (TABLET) (ERLOTINIB) [Suspect]
     Indication: LUNG ADENOCARCINOMA
     Dosage: (150 MG, QD), ORAL; (150 MG, QD), ORAL
     Route: 048
     Dates: start: 20080401, end: 20080523
  2. ERLOTINIB (ERLOTINIB) (TABLET) (ERLOTINIB) [Suspect]
     Indication: LUNG ADENOCARCINOMA
     Dosage: (150 MG, QD), ORAL; (150 MG, QD), ORAL
     Route: 048
     Dates: start: 20080312, end: 20080912
  3. ERLOTINIB (ERLOTINIB) (TABLET) (ERLOTINIB) [Suspect]
     Indication: LUNG ADENOCARCINOMA
     Dosage: (150 MG, QD), ORAL; (150 MG, QD), ORAL
     Route: 048
     Dates: start: 20080523, end: 20080912
  4. VITAMEDIN [Concomitant]
  5. METHYCOBAL (MECOBALAMIN) [Concomitant]
  6. PRAVASTATIN [Concomitant]
  7. LOXONIN (LOXOPROFEN SODIUM) [Concomitant]
  8. SELBEX (TEPRENONE) [Concomitant]
  9. NAUZELIN (DOMPERIDONE) [Concomitant]
  10. VOLTAREN [Concomitant]
  11. FLURBIPROFEN [Concomitant]

REACTIONS (7)
  - ANOREXIA [None]
  - ARTERIAL THROMBOSIS LIMB [None]
  - DIARRHOEA [None]
  - DISEASE PROGRESSION [None]
  - NAUSEA [None]
  - RASH [None]
  - VOMITING [None]
